FAERS Safety Report 20003819 (Version 15)
Quarter: 2023Q2

REPORT INFORMATION
  Report Type: Spontaneous
  Country: US (occurrence: US)
  Receive Date: 20211027
  Receipt Date: 20230530
  Transmission Date: 20230722
  Serious: Yes (Other)
  Sender: FDA-Public Use
  Company Number: US-PFIZER INC-2021260180

PATIENT
  Age: 77 Year
  Sex: Female
  Weight: 81.633 kg

DRUGS (32)
  1. XELJANZ XR [Suspect]
     Active Substance: TOFACITINIB CITRATE
     Indication: Psoriatic arthropathy
     Dosage: 11 MG, 1X/DAY
     Route: 048
  2. XELJANZ XR [Suspect]
     Active Substance: TOFACITINIB CITRATE
     Indication: Osteopenia
     Dosage: 11 MG, 1X/DAY
     Route: 048
  3. XELJANZ XR [Suspect]
     Active Substance: TOFACITINIB CITRATE
     Indication: Osteoarthritis
     Dosage: 11 MG, 1X/DAY
     Route: 048
  4. XELJANZ XR [Suspect]
     Active Substance: TOFACITINIB CITRATE
     Indication: Gout
  5. XELJANZ XR [Suspect]
     Active Substance: TOFACITINIB CITRATE
     Indication: Autoimmune disorder
  6. XELJANZ XR [Suspect]
     Active Substance: TOFACITINIB CITRATE
     Indication: Arthralgia
  7. XELJANZ XR [Suspect]
     Active Substance: TOFACITINIB CITRATE
     Indication: Gait disturbance
  8. XELJANZ XR [Suspect]
     Active Substance: TOFACITINIB CITRATE
     Indication: Asthenia
  9. ATORVASTATIN CALCIUM [Concomitant]
     Active Substance: ATORVASTATIN CALCIUM
     Dosage: 10 MG, 1X/DAY
  10. FISH OIL [Concomitant]
     Active Substance: FISH OIL
     Dosage: 1200 MG, 2X/DAY
  11. SINGULAIR [Concomitant]
     Active Substance: MONTELUKAST SODIUM
     Dosage: 10 MG, 1X/DAY
  12. CANNABIS SATIVA FLOWERING TOP [Concomitant]
     Active Substance: CANNABIS SATIVA FLOWERING TOP
     Dosage: 30 MG (30 MG GEL CAPSULE 5 A DAY; 4 AT NIGHT AND 1 IN THE MORNING)
  13. VITAMINS D3 [Concomitant]
     Dosage: 50 MG, 2X/DAY (1 IN DAY AND 1 AT NIGHT)
  14. CRANBERRY PROBIOTICS [Concomitant]
     Dosage: UNK, 1X/DAY
  15. SELENIUM [Concomitant]
     Active Substance: SELENIUM
     Dosage: 200 UG, 1X/DAY
  16. PREDNISONE [Concomitant]
     Active Substance: PREDNISONE
     Dosage: UNK, 1X/DAY
  17. ZINC [Concomitant]
     Active Substance: ZINC
     Dosage: 50 MG, 1X/DAY
  18. VITAMIN E [Concomitant]
     Active Substance: .ALPHA.-TOCOPHEROL
     Dosage: 180 MG, 1X/DAY
  19. METAMUCIL [Concomitant]
     Active Substance: PLANTAGO SEED
     Dosage: UNK (1 SCOOP A DAY)
  20. ALLEGRA ALLERGY [Concomitant]
     Active Substance: FEXOFENADINE HYDROCHLORIDE
     Dosage: UNK, AS NEEDED (AS NEEDED ONCE A DAY)
  21. ALBUTEROL SULFATE [Concomitant]
     Active Substance: ALBUTEROL SULFATE
     Dosage: UNK
  22. QVAR [Concomitant]
     Active Substance: BECLOMETHASONE DIPROPIONATE
     Dosage: 80 MCG 2 PUFFS IN THE MORNING AND 2 PUFFS AT NIGHT
     Route: 055
  23. TRULICITY [Concomitant]
     Active Substance: DULAGLUTIDE
     Dosage: 5, WEEKLY
  24. VITAMIN B12 [Concomitant]
     Active Substance: CYANOCOBALAMIN
     Dosage: 1000 MG, ONCE EVERY 3 WEEKS
  25. GLUCOSAMINE [Concomitant]
     Active Substance: GLUCOSAMINE
     Dosage: UNK, 2X/DAY(1 IN THE MORNING AND 1 AT NIGHT)
  26. KERATIN [Concomitant]
     Active Substance: KERATIN
     Indication: Alopecia
     Dosage: UNK, 1X/DAY
  27. BIOTIN [Concomitant]
     Active Substance: BIOTIN
     Indication: Alopecia
     Dosage: UNK, 1X/DAY
  28. EMERGEN-C [Concomitant]
     Active Substance: VITAMINS
     Indication: Immune system disorder
     Dosage: 1 DF, 2X/DAY (1 IN THE MORNING; 1 IN THE EVENING)
  29. CINNAMON [Concomitant]
     Active Substance: CINNAMON
     Indication: Diabetes mellitus
     Dosage: UNK, THROUGHOUT THE DAY
  30. HERBALS\TURMERIC [Concomitant]
     Active Substance: HERBALS\TURMERIC
     Dosage: UNK
  31. VITAMINS NOS [Concomitant]
     Active Substance: VITAMINS
     Dosage: UNK
  32. ACYCLOVIR [Concomitant]
     Active Substance: ACYCLOVIR
     Dosage: UNK

REACTIONS (30)
  - Autoimmune disorder [Unknown]
  - Diabetes mellitus [Not Recovered/Not Resolved]
  - Loss of consciousness [Unknown]
  - Cardiac disorder [Unknown]
  - Dependence on oxygen therapy [Unknown]
  - Post procedural complication [Unknown]
  - Glaucoma [Unknown]
  - Sjogren^s syndrome [Unknown]
  - Systemic lupus erythematosus [Unknown]
  - Psoriatic arthropathy [Unknown]
  - Sarcoidosis [Unknown]
  - Craniocerebral injury [Unknown]
  - Extra dose administered [Unknown]
  - Reading disorder [Unknown]
  - Amnesia [Unknown]
  - Confusional state [Unknown]
  - Road traffic accident [Unknown]
  - Head injury [Recovered/Resolved]
  - Hypersensitivity [Unknown]
  - Lung disorder [Not Recovered/Not Resolved]
  - Pain [Unknown]
  - Anaemia [Unknown]
  - Microcytic anaemia [Unknown]
  - COVID-19 [Recovered/Resolved]
  - Bronchitis [Recovering/Resolving]
  - Daydreaming [Unknown]
  - Communication disorder [Unknown]
  - Head banging [Unknown]
  - Nasopharyngitis [Unknown]
  - Dyspnoea [Unknown]

NARRATIVE: CASE EVENT DATE: 20220701
